FAERS Safety Report 5511776-4 (Version None)
Quarter: 2007Q4

REPORT INFORMATION
  Report Type: 
  Country: None (occurrence: None)
  Receive Date: 20071109
  Receipt Date: 20071023
  Transmission Date: 20080405
  Serious: Yes (Other)
  Sender: FDA-Public Use
  Company Number: US-PFIZER INC-2007089742

PATIENT
  Sex: Female
  Weight: 70.8 kg

DRUGS (2)
  1. DILANTIN [Suspect]
     Indication: EPILEPSY
     Route: 048
  2. DILANTIN [Suspect]
     Indication: EPILEPSY
     Dates: start: 19650101

REACTIONS (1)
  - GRAND MAL CONVULSION [None]
